FAERS Safety Report 18587471 (Version 1)
Quarter: 2020Q4

REPORT INFORMATION
  Report Type: Spontaneous
  Country: CA (occurrence: CA)
  Receive Date: 20201207
  Receipt Date: 20201207
  Transmission Date: 20210114
  Serious: Yes (Other)
  Sender: FDA-Public Use
  Company Number: CA-BRISTOL-MYERS SQUIBB COMPANY-BMS-2020-103607

PATIENT
  Sex: Male

DRUGS (10)
  1. RABEPRAZOLE [Concomitant]
     Active Substance: RABEPRAZOLE
     Indication: PRODUCT USED FOR UNKNOWN INDICATION
     Dosage: 20 MILLIGRAM, QD
     Route: 048
  2. TAMSULOSIN [Concomitant]
     Active Substance: TAMSULOSIN
     Indication: PRODUCT USED FOR UNKNOWN INDICATION
     Dosage: 0.4 MILLIGRAM, QD
     Route: 048
  3. METOLAZONE. [Suspect]
     Active Substance: METOLAZONE
     Indication: PRODUCT USED FOR UNKNOWN INDICATION
     Dosage: 0.65 MILLIGRAM, QOD
     Route: 048
  4. COLCHICINE. [Concomitant]
     Active Substance: COLCHICINE
     Indication: PRODUCT USED FOR UNKNOWN INDICATION
     Dosage: 0.6 MILLIGRAM, QD
     Route: 048
  5. APIXABAN [Suspect]
     Active Substance: APIXABAN
     Indication: PRODUCT USED FOR UNKNOWN INDICATION
     Dosage: UNK
     Route: 065
  6. TAFAMIDIS [Concomitant]
     Active Substance: TAFAMIDIS MEGLUMINE
     Indication: PRODUCT USED FOR UNKNOWN INDICATION
     Dosage: 80 MILLIGRAM, QD
     Route: 048
     Dates: start: 201906
  7. BISOPROLOL [Concomitant]
     Active Substance: BISOPROLOL
     Indication: PRODUCT USED FOR UNKNOWN INDICATION
     Dosage: 2.5 MILLIGRAM, QD
     Route: 048
  8. LORAZEPAM. [Concomitant]
     Active Substance: LORAZEPAM
     Indication: PRODUCT USED FOR UNKNOWN INDICATION
     Dosage: 0.2 MILLIGRAM
     Route: 048
  9. PROFERRIN [Concomitant]
     Active Substance: IRON
     Indication: PRODUCT USED FOR UNKNOWN INDICATION
     Dosage: 11 MILLIGRAM, QD
     Route: 048
  10. HALOPERIDOL. [Concomitant]
     Active Substance: HALOPERIDOL
     Indication: PRODUCT USED FOR UNKNOWN INDICATION
     Dosage: 0.5 MILLIGRAM
     Route: 048

REACTIONS (19)
  - Asthenia [Unknown]
  - Dyspnoea [Unknown]
  - Weight increased [Unknown]
  - Respiratory tract congestion [Unknown]
  - Prostate cancer [Unknown]
  - Epistaxis [Unknown]
  - Inguinal hernia [Unknown]
  - Hypersomnia [Unknown]
  - Atrial fibrillation [Unknown]
  - Peripheral swelling [Unknown]
  - Cognitive disorder [Unknown]
  - Fluid retention [Unknown]
  - Cardiac amyloidosis [Unknown]
  - Hallucination [Unknown]
  - Nasal cavity cancer [Unknown]
  - Carpal tunnel syndrome [Unknown]
  - Swelling [Unknown]
  - Pericardial effusion [Unknown]
  - Arthropathy [Unknown]

NARRATIVE: CASE EVENT DATE: 2011
